FAERS Safety Report 4677540-3 (Version None)
Quarter: 2005Q2

REPORT INFORMATION
  Report Type: 
  Country: None (occurrence: None)
  Receive Date: 20050527
  Receipt Date: 20050527
  Transmission Date: 20051028
  Serious: Yes (Life-Threatening, Hospitalization)
  Sender: FDA-Public Use
  Company Number: None

PATIENT
  Age: 88 Year
  Sex: Female
  Weight: 69.4 kg

DRUGS (3)
  1. DIPRIVAN [Suspect]
     Indication: AGITATION
     Dosage: 1% 10MG/ML  IV
     Route: 042
     Dates: start: 20050408, end: 20050408
  2. ASPIRIN [Concomitant]
  3. FOSAMAX [Concomitant]

REACTIONS (1)
  - ANAPHYLACTIC REACTION [None]
